FAERS Safety Report 4835986-4 (Version None)
Quarter: 2005Q4

REPORT INFORMATION
  Report Type: 
  Country: None (occurrence: None)
  Receive Date: 20051118
  Receipt Date: 20051102
  Transmission Date: 20060501
  Serious: Yes (Other)
  Sender: FDA-Public Use
  Company Number: DSA_26768_2005

PATIENT
  Age: 77 Year
  Sex: Male

DRUGS (5)
  1. ENALAPRIL MALEATE [Suspect]
     Indication: HYPERTENSION
     Dosage: 10 MG QD PO
     Route: 048
     Dates: start: 20040101, end: 20050615
  2. ASPIRIN [Concomitant]
  3. LIPITOR [Concomitant]
  4. DIAMICRON [Concomitant]
  5. GLUCOPHAGE [Concomitant]

REACTIONS (5)
  - ANAEMIA [None]
  - COGNITIVE DISORDER [None]
  - DIZZINESS [None]
  - MEMORY IMPAIRMENT [None]
  - SOMNOLENCE [None]
